FAERS Safety Report 8347070-6 (Version None)
Quarter: 2012Q2

REPORT INFORMATION
  Report Type: 
  Country: None (occurrence: None)
  Receive Date: 20120509
  Receipt Date: 20120502
  Transmission Date: 20120825
  Serious: Yes (Other)
  Sender: FDA-Public Use
  Company Number: US-AMGEN-USASP2012019563

PATIENT
  Age: 72 Year
  Sex: Male
  Weight: 78.639 kg

DRUGS (6)
  1. XGEVA [Suspect]
     Indication: METASTASES TO BONE
     Dosage: 120 MG, ONE TIME DOSE
     Route: 058
     Dates: start: 20120125
  2. CALCIUM [Concomitant]
     Indication: SUPPLEMENTATION THERAPY
     Route: 048
  3. DOCETAXEL [Concomitant]
     Dosage: 50 MG, UNK
     Route: 042
     Dates: start: 20120217
  4. CARBOPLATIN [Concomitant]
     Dosage: 180 MG, QWK
     Route: 042
     Dates: start: 20120217
  5. CETUXIMAB [Concomitant]
     Dosage: 500 MG, QWK
     Route: 042
     Dates: start: 20120125
  6. MAGNESIUM [Concomitant]
     Dosage: UNK

REACTIONS (4)
  - PATHOLOGICAL FRACTURE [None]
  - HYPOCALCAEMIA [None]
  - HYPOTENSION [None]
  - RASH [None]
